FAERS Safety Report 8038543-4 (Version None)
Quarter: 2012Q1

REPORT INFORMATION
  Report Type: 
  Country: None (occurrence: None)
  Receive Date: 20120111
  Receipt Date: 20111209
  Transmission Date: 20120608
  Serious: No
  Sender: FDA-Public Use
  Company Number: US-AMGEN-USASP2011065824

PATIENT
  Age: 63 Year
  Sex: Female

DRUGS (1)
  1. ENBREL [Suspect]
     Indication: CONNECTIVE TISSUE DISORDER
     Dosage: 50 MG, QWK
     Dates: start: 20100701

REACTIONS (3)
  - SKIN INJURY [None]
  - ERYTHEMA [None]
  - PAIN IN EXTREMITY [None]
